FAERS Safety Report 7541295-5 (Version None)
Quarter: 2011Q2

REPORT INFORMATION
  Report Type: 
  Country: None (occurrence: None)
  Receive Date: 20110610
  Receipt Date: 20110531
  Transmission Date: 20111010
  Serious: Yes (Other)
  Sender: FDA-Public Use
  Company Number: AT-GENENTECH-319823

PATIENT

DRUGS (2)
  1. RITUXIMAB [Suspect]
     Indication: LYMPHOPROLIFERATIVE DISORDER
     Dosage: 375 MG/M2, UNK
     Route: 065
  2. BENDAMUSTINE [Suspect]
     Indication: LYMPHOPROLIFERATIVE DISORDER
     Dosage: UNK
     Route: 065

REACTIONS (21)
  - CEREBRAL HAEMORRHAGE [None]
  - NEUTROPENIA [None]
  - SKIN REACTION [None]
  - PNEUMONIA [None]
  - LUNG INFILTRATION [None]
  - HERPES ZOSTER [None]
  - MUCOSAL INFLAMMATION [None]
  - TUMOUR LYSIS SYNDROME [None]
  - LEUKOPENIA [None]
  - HEPATITIS B [None]
  - UPPER RESPIRATORY TRACT INFECTION [None]
  - OSTEOPOROTIC FRACTURE [None]
  - CARDIAC FAILURE CHRONIC [None]
  - SEPSIS [None]
  - HERPES SIMPLEX [None]
  - BRONCHITIS [None]
  - ANAEMIA [None]
  - FEBRILE NEUTROPENIA [None]
  - SKIN INFECTION [None]
  - CYTOMEGALOVIRUS INFECTION [None]
  - THROMBOCYTOPENIA [None]
